FAERS Safety Report 5003647-7 (Version None)
Quarter: 2006Q2

REPORT INFORMATION
  Report Type: 
  Country: None (occurrence: None)
  Receive Date: 20060516
  Receipt Date: 20050801
  Transmission Date: 20061013
  Serious: Yes (Hospitalization, Disabling, Other)
  Sender: FDA-Public Use
  Company Number: US-MERCK-0508USA00934

PATIENT
  Age: 45 Year
  Sex: Male
  Weight: 155 kg

DRUGS (2)
  1. VIOXX [Suspect]
     Indication: ARTHRALGIA
     Route: 048
     Dates: start: 19990101, end: 20040401
  2. VIOXX [Suspect]
     Indication: JOINT SWELLING
     Route: 048
     Dates: start: 19990101, end: 20040401

REACTIONS (27)
  - ABDOMINAL PAIN [None]
  - ANGINA PECTORIS [None]
  - ANXIETY [None]
  - ARTERIOSCLEROSIS [None]
  - ARTHROPATHY [None]
  - BACK DISORDER [None]
  - BLOOD AMYLASE INCREASED [None]
  - BLOOD CREATINE PHOSPHOKINASE INCREASED [None]
  - CARDIAC DISORDER [None]
  - CARDIAC FAILURE CONGESTIVE [None]
  - CARDIOMEGALY [None]
  - CEREBROVASCULAR ACCIDENT [None]
  - CHEST PAIN [None]
  - CHRONIC OBSTRUCTIVE PULMONARY DISEASE [None]
  - CONSTIPATION [None]
  - CORONARY ARTERY DISEASE [None]
  - CORONARY ARTERY STENOSIS [None]
  - DYSPNOEA EXERTIONAL [None]
  - LUNG DISORDER [None]
  - MYOCARDIAL INFARCTION [None]
  - PANCREATITIS ACUTE [None]
  - PYREXIA [None]
  - REFLUX OESOPHAGITIS [None]
  - STRESS [None]
  - THROMBOSIS [None]
  - TRANSIENT ISCHAEMIC ATTACK [None]
  - WEIGHT INCREASED [None]
